FAERS Safety Report 7606983-0 (Version None)
Quarter: 2011Q3

REPORT INFORMATION
  Report Type: 
  Country: None (occurrence: None)
  Receive Date: 20110713
  Receipt Date: 20110708
  Transmission Date: 20111222
  Serious: Yes (Other)
  Sender: FDA-Public Use
  Company Number: US-PFIZER INC-2011136525

PATIENT
  Sex: Female

DRUGS (4)
  1. LIPITOR [Suspect]
     Indication: GAIT DISTURBANCE
     Dosage: CUTTING THE TABLETS IN TO TWO
     Route: 048
     Dates: end: 20110601
  2. VALSARTAN [Concomitant]
     Indication: BLOOD PRESSURE ABNORMAL
     Dosage: UNK
     Route: 048
  3. LIPITOR [Suspect]
     Indication: SENSATION OF HEAVINESS
     Dosage: 40 MG, DAILY
     Route: 048
     Dates: end: 20110501
  4. ATENOLOL [Concomitant]
     Indication: BLOOD PRESSURE ABNORMAL
     Dosage: UNK

REACTIONS (3)
  - LIMB DISCOMFORT [None]
  - GAIT DISTURBANCE [None]
  - LYME DISEASE [None]
